FAERS Safety Report 5157806-3 (Version None)
Quarter: 2006Q4

REPORT INFORMATION
  Report Type: 
  Country: None (occurrence: None)
  Receive Date: 20061121
  Receipt Date: 20061121
  Transmission Date: 20070319
  Serious: Yes (Hospitalization)
  Sender: FDA-Public Use
  Company Number: None

PATIENT
  Age: 69 Year
  Sex: Male
  Weight: 81.6475 kg

DRUGS (3)
  1. GADOLINIUM -OMNISCAN [Suspect]
     Indication: NEPHROGENIC FIBROSING DERMOPATHY
     Dosage: 25 ML ONCE IV
     Route: 042
     Dates: start: 20060811, end: 20061120
  2. GADOLINIUM -OMNISCAN [Suspect]
     Indication: RENAL FAILURE CHRONIC
     Dosage: 25 ML ONCE IV
     Route: 042
     Dates: start: 20060811, end: 20061120
  3. . [Concomitant]

REACTIONS (3)
  - JOINT RANGE OF MOTION DECREASED [None]
  - MUSCLE CONTRACTURE [None]
  - NEPHROGENIC FIBROSING DERMOPATHY [None]
